FAERS Safety Report 13817932 (Version 2)
Quarter: 2017Q3

REPORT INFORMATION
  Report Type: Spontaneous
  Country: US (occurrence: US)
  Receive Date: 20170731
  Receipt Date: 20170808
  Transmission Date: 20171127
  Serious: Yes (Other)
  Sender: FDA-Public Use
  Company Number: US-ROCHE-718390

PATIENT
  Age: 70 Year
  Sex: Female
  Weight: 66.7 kg

DRUGS (7)
  1. NEXIUM [Concomitant]
     Active Substance: ESOMEPRAZOLE MAGNESIUM
     Route: 065
  2. SIMVASTATIN. [Concomitant]
     Active Substance: SIMVASTATIN
     Route: 065
  3. BONIVA [Suspect]
     Active Substance: IBANDRONATE SODIUM
     Indication: OSTEOPOROSIS
     Route: 048
     Dates: start: 201005, end: 201007
  4. LEXAPRO [Concomitant]
     Active Substance: ESCITALOPRAM OXALATE
     Route: 065
  5. BONIVA [Suspect]
     Active Substance: IBANDRONATE SODIUM
     Indication: OSTEOPOROSIS
     Route: 042
  6. LUNESTA [Concomitant]
     Active Substance: ESZOPICLONE
     Route: 065
  7. CELEBREX [Concomitant]
     Active Substance: CELECOXIB
     Route: 065

REACTIONS (1)
  - Temporomandibular joint syndrome [Unknown]

NARRATIVE: CASE EVENT DATE: 201007
